APPROVED DRUG PRODUCT: SKYLA
Active Ingredient: LEVONORGESTREL
Strength: 13.5MG
Dosage Form/Route: SYSTEM;INTRAUTERINE
Application: N203159 | Product #001
Applicant: BAYER HEALTHCARE PHARMACEUTICALS INC
Approved: Jan 9, 2013 | RLD: Yes | RS: Yes | Type: RX

PATENTS:
Patent 11850182 | Expires: Sep 14, 2029
Patent 10561524 | Expires: Sep 16, 2029
Patent 11628088 | Expires: Feb 7, 2027